FAERS Safety Report 4836205-5 (Version None)
Quarter: 2005Q4

REPORT INFORMATION
  Report Type: 
  Country: None (occurrence: None)
  Receive Date: 20051118
  Receipt Date: 20051108
  Transmission Date: 20060501
  Serious: Yes (Hospitalization)
  Sender: FDA-Public Use
  Company Number: 2005-0008916

PATIENT
  Age: 49 Year
  Sex: Male

DRUGS (30)
  1. VIREAD [Suspect]
     Indication: HIV INFECTION
     Dosage: 300M G, 1 IN 1 D, ORAL
     Route: 048
     Dates: start: 20051007
  2. CLAVENTIN (CLAVENTIN) [Suspect]
     Indication: HIV INFECTION
     Dosage: 5 GM, 3 IN 1 D, INTRAVENOUS
     Route: 042
     Dates: start: 20051007
  3. OMEPRAZOLE [Suspect]
     Dosage: 20 MG, 1 IN 1 D, ORAL
     Route: 048
     Dates: start: 20050906
  4. BACTRIM [Suspect]
     Dosage: 1 DOSAGE FORMS, 1 IN 1 D
     Route: 048
     Dates: start: 20051005
  5. TELZIR (FOSAMPRENAVIR [Concomitant]
  6. EPIVIR [Concomitant]
  7. VINCRISTINE SULFATE [Concomitant]
  8. CYCLOPHOSPHAMIDE [Concomitant]
  9. DOXORUBICINE (DOXORUBICIN HYDROCHLORIDE) [Concomitant]
  10. MABTHERA (RITUXIMAB) [Concomitant]
  11. IFOSFAMIDE [Concomitant]
  12. ETOPOSIDE [Concomitant]
  13. VANCOMYCIN [Concomitant]
  14. FLAGYL (METRONDAZOLE) [Concomitant]
  15. CASPOFUNGIN (CASPOFUNGIN) [Concomitant]
  16. CEFTAZIDIME SODIUM [Concomitant]
  17. CLINDAMYCIN PHOSPHATE [Concomitant]
  18. TIENAM (PRIMAXIN) [Concomitant]
  19. TOBRAMYCIN [Concomitant]
  20. ALLOPURINOL [Concomitant]
  21. ZOVIRAX [Concomitant]
  22. PHOCYTAN (GLUCOSE 1-PHOSPHATE DISODIUM) [Concomitant]
  23. ACUPAN [Concomitant]
  24. HEPARIN [Concomitant]
  25. SPASFON (SPASFON) [Concomitant]
  26. ACETAMINOPHEN [Concomitant]
  27. VOLUVEN (HETASTARCH) [Concomitant]
  28. FUROSEMIDE [Concomitant]
  29. NORVIR [Concomitant]
  30. .. [Concomitant]

REACTIONS (2)
  - CONDITION AGGRAVATED [None]
  - HEPATITIS CHOLESTATIC [None]
